FAERS Safety Report 17571138 (Version 2)
Quarter: 2020Q3

REPORT INFORMATION
  Report Type: Report from Study
  Country: JP (occurrence: JP)
  Receive Date: 20200323
  Receipt Date: 20200715
  Transmission Date: 20201102
  Serious: Yes (Other)
  Sender: FDA-Public Use
  Company Number: JP-ASTELLAS-2019JP026369

PATIENT
  Age: 71 Year
  Sex: Male
  Weight: 54 kg

DRUGS (5)
  1. ASP2215 [Suspect]
     Active Substance: GILTERITINIB
     Route: 048
     Dates: start: 20191125, end: 20191216
  2. ASP2215 [Suspect]
     Active Substance: GILTERITINIB
     Indication: ACUTE MYELOID LEUKAEMIA REFRACTORY
     Route: 048
     Dates: start: 20191115, end: 20191117
  3. ASP2215 [Suspect]
     Active Substance: GILTERITINIB
     Route: 048
     Dates: start: 20191118, end: 20191124
  4. ASP2215 [Suspect]
     Active Substance: GILTERITINIB
     Route: 048
     Dates: start: 20200115, end: 20200126
  5. ASP2215 [Suspect]
     Active Substance: GILTERITINIB
     Route: 048
     Dates: start: 20200203, end: 20200225

REACTIONS (3)
  - Renal impairment [Recovering/Resolving]
  - Hepatic function abnormal [Recovered/Resolved]
  - Myelosuppression [Recovering/Resolving]

NARRATIVE: CASE EVENT DATE: 20191118
